FAERS Safety Report 4641527-7 (Version None)
Quarter: 2005Q2

REPORT INFORMATION
  Report Type: 
  Country: None (occurrence: None)
  Receive Date: 20050421
  Receipt Date: 20050314
  Transmission Date: 20051028
  Serious: Yes (Hospitalization)
  Sender: FDA-Public Use
  Company Number: DE-ROCHE-398461

PATIENT
  Age: 62 Year
  Sex: Male
  Weight: 95 kg

DRUGS (2)
  1. XELODA [Suspect]
     Route: 048
     Dates: start: 20050203, end: 20050217
  2. MITOMYCIN [Suspect]
     Route: 042
     Dates: start: 20050203

REACTIONS (2)
  - HAEMORRHAGE [None]
  - VASCULITIS [None]
